FAERS Safety Report 12536049 (Version 8)
Quarter: 2017Q2

REPORT INFORMATION
  Report Type: Report from Study
  Country: CA (occurrence: CA)
  Receive Date: 20160707
  Receipt Date: 20170406
  Transmission Date: 20170830
  Serious: Yes (Hospitalization, Other)
  Sender: FDA-Public Use
  Company Number: CA-BAYER-2016-129260

PATIENT
  Age: 77 Year
  Sex: Male
  Weight: 102 kg

DRUGS (15)
  1. OXYGEN. [Concomitant]
     Active Substance: OXYGEN
     Dosage: 10 L/MIN DURING DAY, 8 L/MIN AT NIGHT
     Route: 045
  2. BOSENTAN. [Concomitant]
     Active Substance: BOSENTAN
     Dosage: UNK
  3. WARFARIN [Concomitant]
     Active Substance: WARFARIN
     Dosage: UNK
  4. ATORVASTATIN [Concomitant]
     Active Substance: ATORVASTATIN
     Dosage: UNK
  5. ADEMPAS [Suspect]
     Active Substance: RIOCIGUAT
     Indication: PULMONARY HYPERTENSION
     Dosage: 2 MG, TID
     Route: 048
  6. GLICLAZIDE [Concomitant]
     Active Substance: GLICLAZIDE
     Dosage: UNK
  7. ADEMPAS [Suspect]
     Active Substance: RIOCIGUAT
     Indication: PULMONARY HYPERTENSION
     Dosage: 1.0 MG, TID
     Route: 048
     Dates: start: 20160627
  8. JANUVIA [Concomitant]
     Active Substance: SITAGLIPTIN PHOSPHATE
     Dosage: UNK
  9. SPIRIVA [Concomitant]
     Active Substance: TIOTROPIUM BROMIDE MONOHYDRATE
     Dosage: UNK
  10. PANTOPRAZOLE [Concomitant]
     Active Substance: PANTOPRAZOLE
     Dosage: UNK
  11. ADEMPAS [Suspect]
     Active Substance: RIOCIGUAT
     Indication: PULMONARY ARTERIAL HYPERTENSION
     Dosage: 1.5 MG, TID
     Route: 048
  12. ADEMPAS [Suspect]
     Active Substance: RIOCIGUAT
     Indication: PULMONARY HYPERTENSION
     Dosage: 2.5 MG, TID
     Route: 048
  13. METFORMIN [Concomitant]
     Active Substance: METFORMIN HYDROCHLORIDE
     Dosage: UNK
  14. SALBUTAMOL [Concomitant]
     Active Substance: ALBUTEROL
     Dosage: UNK
  15. FUROSEMIDE. [Concomitant]
     Active Substance: FUROSEMIDE
     Dosage: UNK

REACTIONS (30)
  - Oxygen saturation decreased [Unknown]
  - Influenza [Unknown]
  - Pain in extremity [None]
  - Productive cough [Recovering/Resolving]
  - Skin discolouration [None]
  - Dyspnoea [None]
  - Peripheral swelling [None]
  - Erythema [None]
  - Condition aggravated [None]
  - Blood pressure abnormal [Unknown]
  - Oxygen saturation decreased [None]
  - Diarrhoea [None]
  - Oxygen therapy [None]
  - Weight increased [None]
  - Malaise [Unknown]
  - Hospitalisation [None]
  - Lung disorder [Unknown]
  - Haemoptysis [Unknown]
  - Chest discomfort [Recovered/Resolved]
  - Drug dose omission [Unknown]
  - Peripheral swelling [None]
  - Asthenia [Unknown]
  - Poor quality sleep [None]
  - Lower respiratory tract infection [Recovered/Resolved]
  - Weight bearing difficulty [Recovered/Resolved]
  - Viral upper respiratory tract infection [Unknown]
  - Cardiac disorder [Unknown]
  - Blood pressure diastolic decreased [None]
  - Dyspnoea [Unknown]
  - Chest discomfort [None]

NARRATIVE: CASE EVENT DATE: 2016
